FAERS Safety Report 11310364 (Version 3)
Quarter: 2015Q4

REPORT INFORMATION
  Report Type: Spontaneous
  Country: DE (occurrence: DE)
  Receive Date: 20150724
  Receipt Date: 20151005
  Transmission Date: 20160304
  Serious: Yes (Death, Other)
  Sender: FDA-Public Use
  Company Number: DE-B.I. PHARMACEUTICALS,INC./RIDGEFIELD-2015-BI-39851DE

PATIENT
  Age: 80 Year
  Sex: Male
  Weight: 70 kg

DRUGS (5)
  1. PRADAXA [Suspect]
     Active Substance: DABIGATRAN ETEXILATE MESYLATE
     Indication: ATRIAL FIBRILLATION
     Dosage: 220 MG
     Route: 048
     Dates: start: 20150430, end: 20150526
  2. FINASTERID [Concomitant]
     Indication: PRODUCT USED FOR UNKNOWN INDICATION
     Dosage: 5 MG
     Route: 065
  3. ATORVASTATIN [Concomitant]
     Active Substance: ATORVASTATIN
     Indication: HYPERLIPIDAEMIA
     Dosage: 20 MG
     Route: 065
  4. TAMSULOSIN [Concomitant]
     Active Substance: TAMSULOSIN
     Indication: BENIGN PROSTATIC HYPERPLASIA
     Dosage: 0.4 MG
     Route: 065
  5. FLECAINID [Concomitant]
     Active Substance: FLECAINIDE
     Indication: ATRIAL FIBRILLATION
     Dosage: 200 MG
     Route: 065
     Dates: start: 20150430, end: 20150526

REACTIONS (22)
  - Hepatic function abnormal [Unknown]
  - Haemoptysis [Unknown]
  - Organising pneumonia [Unknown]
  - Circulatory collapse [Unknown]
  - Systemic inflammatory response syndrome [Unknown]
  - Papilloma [Unknown]
  - Inflammatory marker increased [Unknown]
  - Multi-organ failure [Fatal]
  - Renal impairment [Unknown]
  - Lung infiltration [Unknown]
  - Pulmonary haemorrhage [Fatal]
  - Hepatic failure [Unknown]
  - Respiratory disorder [Unknown]
  - Atypical pneumonia [Unknown]
  - Dyspnoea [Unknown]
  - Chills [Unknown]
  - Pyrexia [Unknown]
  - Renal failure [Unknown]
  - Respiratory failure [Fatal]
  - Haemorrhagic anaemia [Unknown]
  - Bronchial disorder [Unknown]
  - Pulmonary haemorrhage [Unknown]

NARRATIVE: CASE EVENT DATE: 20150524
